FAERS Safety Report 18690329 (Version 2)
Quarter: 2021Q1

REPORT INFORMATION
  Report Type: Spontaneous
  Country: US (occurrence: US)
  Receive Date: 20210101
  Receipt Date: 20210127
  Transmission Date: 20210419
  Serious: Yes (Other)
  Sender: FDA-Public Use
  Company Number: US-SA-2020SA372366

PATIENT
  Age: 39 Year
  Sex: Female
  Weight: 53.52 kg

DRUGS (7)
  1. PARAPLATIN [Concomitant]
     Active Substance: CARBOPLATIN
     Indication: BREAST CANCER FEMALE
     Dosage: UNK
  2. TAXOTERE [Suspect]
     Active Substance: DOCETAXEL
     Dosage: 108 MG, Q3W
     Route: 065
     Dates: start: 20090910, end: 20090910
  3. HERCEPTIN [Concomitant]
     Active Substance: TRASTUZUMAB
     Dosage: UNK, Q3W
     Dates: start: 20090910, end: 20090910
  4. CARBOPLATIN. [Concomitant]
     Active Substance: CARBOPLATIN
     Indication: BREAST CANCER FEMALE
     Dosage: UNK, Q3W
     Dates: start: 20090427, end: 20090427
  5. HERCEPTIN [Concomitant]
     Active Substance: TRASTUZUMAB
     Indication: BREAST CANCER FEMALE
     Dosage: UNK, Q3W
     Dates: start: 20090427, end: 20090427
  6. TAXOTERE [Suspect]
     Active Substance: DOCETAXEL
     Indication: BREAST CANCER FEMALE
     Dosage: 108 MG, Q3W
     Route: 065
     Dates: start: 20090427, end: 20090427
  7. CARBOPLATIN. [Concomitant]
     Active Substance: CARBOPLATIN
     Dosage: UNK, Q3W
     Dates: start: 20090910, end: 20090910

REACTIONS (2)
  - Emotional distress [Unknown]
  - Alopecia [Recovering/Resolving]
